FAERS Safety Report 5318451-X (Version None)
Quarter: 2007Q2

REPORT INFORMATION
  Report Type: 
  Country: None (occurrence: None)
  Receive Date: 20070430
  Receipt Date: 20070413
  Transmission Date: 20071010
  Serious: Yes (Other)
  Sender: FDA-Public Use
  Company Number: 2007EU000062

PATIENT
  Age: 13 Year
  Sex: Female
  Weight: 59 kg

DRUGS (2)
  1. PROGRAF [Suspect]
     Indication: DERMATITIS ATOPIC
     Dosage: 0.1%, BID, TOPICAL
     Route: 061
     Dates: start: 20060820, end: 20060822
  2. SOFTENERS, EMOLLIENTS [Concomitant]

REACTIONS (3)
  - APPLICATION SITE REACTION [None]
  - ERYTHEMA MULTIFORME [None]
  - SKIN HYPERPIGMENTATION [None]
